FAERS Safety Report 12918151 (Version 2)
Quarter: 2016Q4

REPORT INFORMATION
  Report Type: Report from Study
  Country: US (occurrence: US)
  Receive Date: 20161107
  Receipt Date: 20161110
  Transmission Date: 20170207
  Serious: Yes (Other)
  Sender: FDA-Public Use
  Company Number: PHEH2016US028786

PATIENT
  Age: 23 Year
  Sex: Female
  Weight: 60.32 kg

DRUGS (12)
  1. PREDNISONE. [Concomitant]
     Active Substance: PREDNISONE
     Indication: LUPUS NEPHRITIS
     Dosage: 40 MG, QD
     Route: 065
     Dates: start: 20150819
  2. MYFORTIC [Suspect]
     Active Substance: MYCOPHENOLATE SODIUM
     Indication: LUPUS NEPHRITIS
     Dosage: 720 MG, BID
     Route: 048
     Dates: start: 20150424, end: 20160914
  3. LASIX [Concomitant]
     Active Substance: FUROSEMIDE
     Indication: PRODUCT USED FOR UNKNOWN INDICATION
     Dosage: 40 MG, BID
     Route: 065
     Dates: start: 20161031
  4. IMITREX [Concomitant]
     Active Substance: SUMATRIPTAN SUCCINATE
     Indication: HEADACHE
     Dosage: 50 MG, UNK
     Dates: start: 20150817, end: 20160914
  5. IBUPROFEN. [Concomitant]
     Active Substance: IBUPROFEN
     Indication: PRODUCT USED FOR UNKNOWN INDICATION
     Dosage: 800 MG, Q6H (PRN)
     Route: 065
     Dates: start: 20161018
  6. LACTULOSE. [Concomitant]
     Active Substance: LACTULOSE
     Indication: PRODUCT USED FOR UNKNOWN INDICATION
     Dosage: 15 ML, QD
     Route: 065
     Dates: start: 20161031
  7. LISINOPRIL. [Concomitant]
     Active Substance: LISINOPRIL
     Indication: LUPUS NEPHRITIS
     Dosage: 10 MG, QD
     Route: 065
     Dates: start: 201509
  8. CELEXA [Concomitant]
     Active Substance: CITALOPRAM HYDROBROMIDE
     Indication: PRODUCT USED FOR UNKNOWN INDICATION
     Dosage: 20 MG, QD
     Route: 065
     Dates: start: 20161031
  9. MYFORTIC [Suspect]
     Active Substance: MYCOPHENOLATE SODIUM
     Dosage: 720 MG, BID
     Route: 048
     Dates: start: 20161031
  10. PLAQUENIL [Concomitant]
     Active Substance: HYDROXYCHLOROQUINE SULFATE
     Indication: LUPUS NEPHRITIS
     Dosage: 200 MG, BID
     Route: 065
     Dates: start: 20150324
  11. PROCARDIA [Concomitant]
     Active Substance: NIFEDIPINE
     Indication: PRODUCT USED FOR UNKNOWN INDICATION
     Dosage: 30 MG, QD
     Route: 065
     Dates: start: 20141023
  12. GABAPENTIN. [Concomitant]
     Active Substance: GABAPENTIN
     Indication: LUPUS NEPHRITIS
     Dosage: 300 MG, BID
     Dates: start: 20160104, end: 20160914

REACTIONS (3)
  - Maternal exposure during pregnancy [Unknown]
  - Product use issue [Unknown]
  - Abortion spontaneous [Recovered/Resolved]

NARRATIVE: CASE EVENT DATE: 20161018
